FAERS Safety Report 17278259 (Version 1)
Quarter: 2020Q1

REPORT INFORMATION
  Report Type: Spontaneous
  Country: US (occurrence: US)
  Receive Date: 20200116
  Receipt Date: 20200116
  Transmission Date: 20200409
  Serious: No
  Sender: FDA-Public Use
  Company Number: None

PATIENT
  Age: 38 Year
  Sex: Female
  Weight: 56.25 kg

DRUGS (4)
  1. MULTIVITAMIN [Concomitant]
     Active Substance: VITAMINS
  2. PROBIOTICS [Concomitant]
     Active Substance: PROBIOTICS NOS
  3. SERTRALINE [Suspect]
     Active Substance: SERTRALINE HYDROCHLORIDE
     Indication: ANXIETY
     Dosage: ?          QUANTITY:90 TABLET(S);?
     Route: 048
     Dates: start: 20191230, end: 20200116
  4. APPLE CIDER VIEGAR CAPSULES [Concomitant]

REACTIONS (6)
  - Product substitution issue [None]
  - Heart rate increased [None]
  - Headache [None]
  - Disturbance in attention [None]
  - Anxiety [None]
  - Hyperhidrosis [None]

NARRATIVE: CASE EVENT DATE: 20191230
